FAERS Safety Report 25271704 (Version 4)
Quarter: 2025Q2

REPORT INFORMATION
  Report Type: Spontaneous
  Country: US (occurrence: US)
  Receive Date: 20250506
  Receipt Date: 20250623
  Transmission Date: 20250717
  Serious: No
  Sender: NOVARTIS
  Company Number: US-002147023-NVSC2025US071866

PATIENT

DRUGS (1)
  1. PLUVICTO [Suspect]
     Active Substance: LUTETIUM LU-177 VIPIVOTIDE TETRAXETAN
     Indication: Product used for unknown indication
     Route: 065

REACTIONS (4)
  - Ill-defined disorder [Unknown]
  - Illness [Unknown]
  - SARS-CoV-2 test positive [Unknown]
  - General physical health deterioration [Unknown]
